FAERS Safety Report 15184237 (Version 1)
Quarter: 2018Q3

REPORT INFORMATION
  Report Type: Spontaneous
  Country: US (occurrence: US)
  Receive Date: 20180723
  Receipt Date: 20180723
  Transmission Date: 20181010
  Serious: No
  Sender: FDA-Public Use
  Company Number: US-TARO-2018TAR00406

PATIENT
  Sex: Female

DRUGS (2)
  1. TAZAROTENE CREAM 0.1% [Suspect]
     Active Substance: TAZAROTENE
     Indication: SOLAR DERMATITIS
  2. TAZAROTENE CREAM 0.1% [Suspect]
     Active Substance: TAZAROTENE
     Indication: ACNE
     Dosage: APPLY TO THE FACE, 1X/DAY
     Route: 061

REACTIONS (5)
  - Solar dermatitis [Not Recovered/Not Resolved]
  - Off label use [Recovered/Resolved]
  - Product packaging issue [Recovered/Resolved]
  - Drug dose omission [Not Recovered/Not Resolved]
  - Acne [Not Recovered/Not Resolved]

NARRATIVE: CASE EVENT DATE: 2018
